FAERS Safety Report 21533736 (Version 1)
Quarter: 2022Q4

REPORT INFORMATION
  Report Type: Report from Study
  Country: AU (occurrence: AU)
  Receive Date: 20221101
  Receipt Date: 20221101
  Transmission Date: 20230113
  Serious: Yes (Other)
  Sender: FDA-Public Use
  Company Number: AU-BAYER-2022A145374

PATIENT
  Sex: Male

DRUGS (1)
  1. EYLEA [Suspect]
     Active Substance: AFLIBERCEPT
     Indication: Neovascular age-related macular degeneration
     Dosage: 40 MG/ML; INTRAVITREAL INJECTION TO BOTH EYES/ RIGHT EYE STARTED INJECTIONS; SOL FOR INJ IN PFS
     Route: 031
     Dates: start: 20221018

REACTIONS (3)
  - Ophthalmoplegia [Not Recovered/Not Resolved]
  - Pain [Not Recovered/Not Resolved]
  - Injection site pain [Recovered/Resolved]
